FAERS Safety Report 26192813 (Version 1)
Quarter: 2025Q4

REPORT INFORMATION
  Report Type: Spontaneous
  Country: EU (occurrence: EU)
  Receive Date: 20251223
  Receipt Date: 20251223
  Transmission Date: 20260119
  Serious: Yes (Other)
  Sender: PFIZER
  Company Number: None

PATIENT
  Age: 30 Year
  Sex: Female
  Weight: 52 kg

DRUGS (4)
  1. SPIRONOLACTONE [Suspect]
     Active Substance: SPIRONOLACTONE
     Indication: Alopecia
     Dosage: 1/2 TABLET AT DINNER FOR 2 WEEKS
     Route: 048
     Dates: start: 20250701
  2. SPIRONOLACTONE [Suspect]
     Active Substance: SPIRONOLACTONE
     Dosage: 1 TABLET DAILY
     Route: 048
  3. MINOXIDIL [Concomitant]
     Active Substance: MINOXIDIL
  4. DENILLE [Concomitant]

REACTIONS (2)
  - Arrhythmia [Recovering/Resolving]
  - Nightmare [Recovered/Resolved]

NARRATIVE: CASE EVENT DATE: 20250701
